FAERS Safety Report 4963971-0 (Version None)
Quarter: 2006Q2

REPORT INFORMATION
  Report Type: 
  Country: None (occurrence: None)
  Receive Date: 20060405
  Receipt Date: 20050321
  Transmission Date: 20061013
  Serious: Yes (Hospitalization)
  Sender: FDA-Public Use
  Company Number: US-MERCK-0503USA03752

PATIENT
  Age: 66 Year
  Sex: Female
  Weight: 64 kg

DRUGS (6)
  1. VIOXX [Suspect]
     Indication: PAIN IN EXTREMITY
     Route: 048
     Dates: start: 20040418, end: 20040513
  2. GLUCOVANCE [Concomitant]
     Indication: DIABETES MELLITUS
     Route: 065
  3. ALTACE [Concomitant]
     Route: 065
  4. NORVASC [Concomitant]
     Route: 065
  5. PREMARIN [Concomitant]
     Route: 065
  6. PEN-VEE K [Concomitant]
     Indication: GINGIVAL INFECTION
     Route: 065

REACTIONS (18)
  - ARTHRALGIA [None]
  - CEREBROVASCULAR ACCIDENT [None]
  - DIABETES MELLITUS [None]
  - DIABETIC NEUROPATHY [None]
  - DYSPNOEA EXERTIONAL [None]
  - GASTRIC ULCER [None]
  - GINGIVAL INFECTION [None]
  - HYPERTENSION [None]
  - MEMORY IMPAIRMENT [None]
  - MICROCYTIC ANAEMIA [None]
  - MYALGIA [None]
  - MYOCARDIAL INFARCTION [None]
  - NEUROPATHY PERIPHERAL [None]
  - ORGAN FAILURE [None]
  - POLLAKIURIA [None]
  - PRESCRIBED OVERDOSE [None]
  - PULMONARY EMBOLISM [None]
  - THROMBOSIS [None]
